FAERS Safety Report 8377237-2 (Version None)
Quarter: 2012Q1

REPORT INFORMATION
  Report Type: 
  Country: None (occurrence: None)
  Receive Date: 20120323
  Receipt Date: 20110324
  Transmission Date: 20120608
  Serious: Yes (Other)
  Sender: FDA-Public Use
  Company Number: 163-21880-11033024

PATIENT
  Age: 74 Year
  Sex: Female

DRUGS (4)
  1. DECADRON [Concomitant]
  2. REVLIMID [Suspect]
     Indication: MULTIPLE MYELOMA
     Dosage: 25 MG, DAILY X 21 DAYS, PO 10 MG, DAILY X 21 DAYS, PO
     Route: 048
     Dates: start: 20100901, end: 20110301
  3. REVLIMID [Suspect]
     Indication: MULTIPLE MYELOMA
     Dosage: 25 MG, DAILY X 21 DAYS, PO 10 MG, DAILY X 21 DAYS, PO
     Route: 048
     Dates: start: 20110301
  4. AREDIA (PAMIDRONATE DISODIUM) (INJECTION FOR INFUSION) [Concomitant]

REACTIONS (4)
  - ANAEMIA [None]
  - SINUSITIS [None]
  - FATIGUE [None]
  - PNEUMONIA [None]
